FAERS Safety Report 16848366 (Version 1)
Quarter: 2019Q3

REPORT INFORMATION
  Report Type: Report from Study
  Country: None (occurrence: US)
  Receive Date: 20190925
  Receipt Date: 20190925
  Transmission Date: 20191005
  Serious: Yes (Other)
  Sender: FDA-Public Use
  Company Number: US-ABBVIE-19K-163-2923379-00

PATIENT
  Age: 67 Year
  Sex: Female

DRUGS (1)
  1. HUMIRA [Suspect]
     Active Substance: ADALIMUMAB
     Indication: CROHN^S DISEASE
     Route: 058
     Dates: end: 2019

REACTIONS (8)
  - Fibromyalgia [Unknown]
  - Fatigue [Unknown]
  - Nasopharyngitis [Recovered/Resolved]
  - Arthralgia [Unknown]
  - Drug ineffective [Unknown]
  - Plantar fasciitis [Recovering/Resolving]
  - Pain [Unknown]
  - Bronchitis [Unknown]

NARRATIVE: CASE EVENT DATE: 2019
